FAERS Safety Report 9196809 (Version 2)
Quarter: 2013Q2

REPORT INFORMATION
  Report Type: Spontaneous
  Country: US (occurrence: US)
  Receive Date: 20130328
  Receipt Date: 20130404
  Transmission Date: 20140414
  Serious: No
  Sender: FDA-Public Use
  Company Number: US-TEVA-394850USA

PATIENT
  Age: 24 Year
  Sex: Female
  Weight: 52.21 kg

DRUGS (3)
  1. PLAN B ONE-STEP [Suspect]
     Indication: POST COITAL CONTRACEPTION
     Dosage: 1.5 MILLIGRAM DAILY;
     Route: 048
     Dates: start: 20130324, end: 20130324
  2. ALBUTEROL [Concomitant]
     Indication: ASTHMA
  3. IRON [Concomitant]
     Indication: ANAEMIA
     Dosage: 80 MILLIGRAM DAILY;
     Route: 048

REACTIONS (4)
  - Chest pain [Recovered/Resolved]
  - Gastritis [Recovered/Resolved]
  - Nausea [Recovered/Resolved]
  - Vomiting [Recovered/Resolved]
